FAERS Safety Report 7548111-6 (Version None)
Quarter: 2011Q2

REPORT INFORMATION
  Report Type: 
  Country: None (occurrence: None)
  Receive Date: 20110615
  Receipt Date: 20110601
  Transmission Date: 20111010
  Serious: Yes (Disabling)
  Sender: FDA-Public Use
  Company Number: GB-RANBAXY-2011R1-45058

PATIENT
  Age: 2 Year
  Sex: Male

DRUGS (5)
  1. CLOBAZAM [Concomitant]
     Indication: CONVULSION
     Dosage: UNK
     Route: 065
  2. VALPROIC ACID [Suspect]
     Indication: CONVULSION
     Dosage: UNK
     Route: 065
  3. STIRIPENTOL [Suspect]
     Indication: CONVULSION
     Dosage: UNK
     Route: 065
  4. AMOXICILLIN AND CLAVULANATE POTASSIUM [Suspect]
     Indication: MASTOIDITIS
     Dosage: UNK
     Route: 065
  5. GENTAMICIN [Suspect]
     Indication: MASTOIDITIS
     Dosage: UNK
     Route: 065

REACTIONS (4)
  - ENCEPHALOPATHY [None]
  - CEREBELLAR ATROPHY [None]
  - MOTOR DEVELOPMENTAL DELAY [None]
  - FEEDING DISORDER [None]
